FAERS Safety Report 9014771 (Version 1)
Quarter: 2013Q1

REPORT INFORMATION
  Report Type: Spontaneous
  Country: FI (occurrence: FI)
  Receive Date: 20130115
  Receipt Date: 20130115
  Transmission Date: 20140127
  Serious: Yes (Other)
  Sender: FDA-Public Use
  Company Number: FI-VERTEX PHARMACEUTICALS INC.-2013-000586

PATIENT
  Age: 68 Year
  Sex: Female

DRUGS (10)
  1. INCIVO [Suspect]
     Indication: CHRONIC HEPATITIS C
     Dosage: 750 MG, TID
     Route: 048
     Dates: start: 20121102, end: 20121121
  2. COPEGUS [Suspect]
     Indication: CHRONIC HEPATITIS C
     Dosage: 400 MG, BID
     Route: 048
     Dates: start: 20121102, end: 20121121
  3. PEGINTRON [Suspect]
     Indication: CHRONIC HEPATITIS C
     Dosage: 80 ?G, QW
     Route: 058
     Dates: start: 20121102, end: 20121121
  4. CALCICHEW D3 FORTE [Concomitant]
     Dosage: UNK
     Route: 048
  5. TEVETEN (EPROSARTAN MESILATE) [Concomitant]
     Dosage: 600 MG, QD
     Route: 048
  6. PROPRANOLOL HCL [Concomitant]
     Dosage: 40 MG, QD
     Route: 048
  7. VAGIFEM [Concomitant]
     Dosage: 10 ?G, QW
  8. BURANA [Concomitant]
     Dosage: UNK
     Route: 048
  9. IMOVANE [Concomitant]
     Dosage: UNK
     Route: 048
  10. RISEDRONAT NATRIUM [Concomitant]
     Dosage: 35 MG, UNK
     Route: 048

REACTIONS (5)
  - Dehydration [Not Recovered/Not Resolved]
  - Diarrhoea [Not Recovered/Not Resolved]
  - Fatigue [Not Recovered/Not Resolved]
  - Vomiting [Not Recovered/Not Resolved]
  - Nausea [Not Recovered/Not Resolved]
